FAERS Safety Report 8062889-7 (Version None)
Quarter: 2012Q1

REPORT INFORMATION
  Report Type: 
  Country: None (occurrence: None)
  Receive Date: 20120123
  Receipt Date: 20120123
  Transmission Date: 20120608
  Serious: No
  Sender: FDA-Public Use
  Company Number: None

PATIENT
  Age: 61 Year
  Sex: Male
  Weight: 64.863 kg

DRUGS (1)
  1. KETOCONAZOLE [Suspect]
     Indication: TINEA CAPITIS
     Dosage: 200MG
     Route: 048
     Dates: start: 20120116, end: 20120117

REACTIONS (2)
  - DIZZINESS POSTURAL [None]
  - FALL [None]
